FAERS Safety Report 9447444 (Version 1)
Quarter: 2013Q3

REPORT INFORMATION
  Report Type: Spontaneous
  Country: US (occurrence: US)
  Receive Date: 20130808
  Receipt Date: 20130808
  Transmission Date: 20140515
  Serious: No
  Sender: FDA-Public Use
  Company Number: US-PFIZER INC-2013229655

PATIENT
  Age: 80 Year
  Sex: Male
  Weight: 68.03 kg

DRUGS (4)
  1. LIPITOR [Suspect]
     Indication: BLOOD CHOLESTEROL INCREASED
     Dosage: UNK
     Route: 048
  2. ASPIRIN [Concomitant]
     Dosage: 325 MG, UNK
  3. LUMIGAN [Concomitant]
     Dosage: UNK
  4. FLUTICASONE [Concomitant]
     Dosage: UNK

REACTIONS (1)
  - Pruritus [Not Recovered/Not Resolved]
